FAERS Safety Report 7760533-7 (Version None)
Quarter: 2011Q3

REPORT INFORMATION
  Report Type: 
  Country: None (occurrence: None)
  Receive Date: 20110919
  Receipt Date: 20110908
  Transmission Date: 20111222
  Serious: Yes (Hospitalization)
  Sender: FDA-Public Use
  Company Number: BR-ELI_LILLY_AND_COMPANY-BR201107007008

PATIENT
  Sex: Male
  Weight: 110 kg

DRUGS (9)
  1. CORDIL [Concomitant]
  2. HUMULIN N [Suspect]
     Indication: DIABETES MELLITUS
     Dosage: UNK, UNKNOWN
     Route: 065
     Dates: start: 20100701
  3. GALVUS [Concomitant]
  4. FINASTERIDA [Concomitant]
  5. WARFARIN SODIUM [Concomitant]
  6. BALCOR [Concomitant]
     Dosage: UNK, UNKNOWN
     Route: 065
  7. DIAMICRON [Concomitant]
  8. DILTIAZEM HCL [Concomitant]
     Dosage: UNK, UNKNOWN
     Route: 065
  9. INSULIN [Concomitant]
     Dosage: UNK, UNKNOWN
     Route: 065

REACTIONS (1)
  - THROMBOSIS [None]
